FAERS Safety Report 8425486-7 (Version None)
Quarter: 2012Q2

REPORT INFORMATION
  Report Type: 
  Country: None (occurrence: None)
  Receive Date: 20120611
  Receipt Date: 20120604
  Transmission Date: 20120825
  Serious: Yes (Death, Other)
  Sender: FDA-Public Use
  Company Number: US-US-EMD SERONO, INC.-7020439

PATIENT
  Sex: Female

DRUGS (4)
  1. PERCOCET [Concomitant]
     Indication: PAIN
     Route: 048
     Dates: start: 20091029, end: 20091203
  2. REBIF [Suspect]
     Indication: MULTIPLE SCLEROSIS
     Dates: start: 20081129, end: 20090212
  3. FIORICET [Concomitant]
     Indication: PAIN
     Route: 048
     Dates: start: 20090212, end: 20090708
  4. LIDODERM [Concomitant]
     Indication: PRODUCT USED FOR UNKNOWN INDICATION
     Dates: start: 20100223

REACTIONS (5)
  - EYE DISORDER [None]
  - SMALL CELL LUNG CANCER STAGE UNSPECIFIED [None]
  - PAIN [None]
  - ASTHENIA [None]
  - ABASIA [None]
